FAERS Safety Report 7486674 (Version 4)
Quarter: 2013Q1

REPORT INFORMATION
  Report Type: Spontaneous
  Country: US (occurrence: US)
  Receive Date: 20100719
  Receipt Date: 20130225
  Transmission Date: 20140127
  Serious: Yes (Hospitalization, Other)
  Sender: FDA-Public Use
  Company Number: US-JNJFOC-20100703626

PATIENT
  Sex: Female

DRUGS (2)
  1. LEVAQUIN [Suspect]
     Indication: SINUS OPERATION
     Route: 048
  2. Z-PAK [Suspect]
     Indication: PRODUCT USED FOR UNKNOWN INDICATION
     Route: 065

REACTIONS (5)
  - Tendon rupture [Unknown]
  - Foot deformity [Unknown]
  - Thrombosis [Unknown]
  - Deep vein thrombosis [Unknown]
  - Depression [Unknown]
